FAERS Safety Report 9817674 (Version 1)
Quarter: 2014Q1

REPORT INFORMATION
  Report Type: Spontaneous
  Country: US (occurrence: None)
  Receive Date: 20140110
  Receipt Date: 20140110
  Transmission Date: 20141002
  Serious: Yes (Other)
  Sender: FDA-Public Use
  Company Number: None

PATIENT
  Age: 61 Year
  Sex: Female

DRUGS (13)
  1. FENTANYL [Suspect]
     Indication: BACK PAIN
     Dosage: APPLY 1 PATCH EVERY 72 HOURS AFTER REMOVING OLD PATCH, DO NO CUT ?SWITCH TO GENERIC IN SEPT 2013 (BEEN ON DURAGESIC SINCE OVER A YEAR)
     Dates: start: 201309
  2. METFORMIN [Concomitant]
  3. LASIX [Concomitant]
  4. KCL [Concomitant]
  5. AMLODIPINE [Concomitant]
  6. PAROXETINE [Concomitant]
  7. SINGULAIR [Concomitant]
  8. IMITREX [Concomitant]
  9. CLARINEX [Concomitant]
  10. PROMETHAZINE [Concomitant]
  11. PERCOCET [Concomitant]
  12. SPIRIVA [Concomitant]
  13. PROTONIX [Concomitant]

REACTIONS (1)
  - Unresponsive to stimuli [None]
